FAERS Safety Report 5039707-4 (Version None)
Quarter: 2006Q2

REPORT INFORMATION
  Report Type: 
  Country: None (occurrence: None)
  Receive Date: 20060601
  Receipt Date: 20060106
  Transmission Date: 20061013
  Serious: No
  Sender: FDA-Public Use
  Company Number: 2006PV006736

PATIENT
  Age: 59 Year
  Sex: Male
  Weight: 79.3795 kg

DRUGS (4)
  1. BYETTA [Suspect]
     Indication: DIABETES MELLITUS NON-INSULIN-DEPENDENT
     Dosage: 5 MCG;BID;SC
     Route: 058
     Dates: start: 20051230
  2. GLIPIZIDE [Concomitant]
  3. METFORMIN [Concomitant]
  4. ASPIRIN [Concomitant]

REACTIONS (6)
  - FAECES HARD [None]
  - HEADACHE [None]
  - INJECTION SITE BRUISING [None]
  - INJECTION SITE ERYTHEMA [None]
  - INJECTION SITE URTICARIA [None]
  - NAUSEA [None]
